FAERS Safety Report 5123197-7 (Version None)
Quarter: 2006Q4

REPORT INFORMATION
  Report Type: 
  Country: None (occurrence: None)
  Receive Date: 20061005
  Receipt Date: 20060927
  Transmission Date: 20070319
  Serious: Yes (Other)
  Sender: FDA-Public Use
  Company Number: 2006097781

PATIENT
  Age: 60 Year
  Sex: Female

DRUGS (1)
  1. ALPRAZOLAM [Suspect]
     Indication: ANXIETY
     Dosage: 0.125 MG, AS NECESSARY, SUBLINGUAL
     Route: 060

REACTIONS (1)
  - NO ADVERSE DRUG EFFECT [None]
